FAERS Safety Report 11556670 (Version 31)
Quarter: 2018Q2

REPORT INFORMATION
  Report Type: Report from Study
  Country: US (occurrence: US)
  Receive Date: 20150925
  Receipt Date: 20180626
  Transmission Date: 20180711
  Serious: Yes (Hospitalization, Other)
  Sender: FDA-Public Use
  Company Number: US-ACTELION-A-NJ2015-124330

PATIENT
  Age: 55 Year
  Sex: Male
  Weight: 74.38 kg

DRUGS (6)
  1. TYVASO [Suspect]
     Active Substance: TREPROSTINIL
     Indication: PRODUCT USED FOR UNKNOWN INDICATION
     Route: 065
  2. ADEMPAS [Concomitant]
     Active Substance: RIOCIGUAT
  3. SILDENAFIL. [Concomitant]
     Active Substance: SILDENAFIL
  4. OPSUMIT [Suspect]
     Active Substance: MACITENTAN
     Indication: PULMONARY ARTERIAL HYPERTENSION
     Dosage: 10 MG, QD
     Route: 048
     Dates: start: 20150403
  5. REMODULIN [Concomitant]
     Active Substance: TREPROSTINIL
  6. OPSUMIT [Suspect]
     Active Substance: MACITENTAN
     Dosage: 10 MG, QD
     Route: 048

REACTIONS (44)
  - Cardiac failure chronic [Unknown]
  - Infection [Unknown]
  - Condition aggravated [Unknown]
  - Cardiac failure congestive [Unknown]
  - Blood potassium decreased [Unknown]
  - Abdominal distension [Unknown]
  - Syncope [Unknown]
  - Exercise tolerance decreased [Unknown]
  - Headache [Unknown]
  - Diuretic therapy [Unknown]
  - Right ventricular failure [Unknown]
  - Dyspnoea at rest [Unknown]
  - Swelling face [Unknown]
  - General physical health deterioration [Unknown]
  - Cardiac septal defect [Unknown]
  - Hypotension [Unknown]
  - Catheter site infection [Unknown]
  - Fluid overload [Unknown]
  - Electrolyte substitution therapy [Unknown]
  - Weight decreased [Unknown]
  - Peripheral swelling [Unknown]
  - Palpitations [Unknown]
  - Pulmonary arterial hypertension [Unknown]
  - Lung transplant [Unknown]
  - Dyspnoea exertional [Unknown]
  - Dyspnoea [Unknown]
  - Cellulitis [Unknown]
  - Stress [Unknown]
  - Asthenia [Unknown]
  - Fall [Unknown]
  - Nausea [Unknown]
  - Catheter site pain [Unknown]
  - Oxygen saturation decreased [Unknown]
  - Oedema [Unknown]
  - Blood sodium decreased [Unknown]
  - Weight increased [Unknown]
  - Oedema peripheral [Unknown]
  - Fluid retention [Unknown]
  - Fatigue [Unknown]
  - Acute kidney injury [Unknown]
  - Transfusion [Unknown]
  - Groin pain [Unknown]
  - Chest pain [Unknown]
  - Cough [Unknown]

NARRATIVE: CASE EVENT DATE: 201611
